FAERS Safety Report 16657344 (Version 2)
Quarter: 2019Q4

REPORT INFORMATION
  Report Type: Spontaneous
  Country: HU (occurrence: HU)
  Receive Date: 20190801
  Receipt Date: 20191220
  Transmission Date: 20200122
  Serious: Yes (Hospitalization)
  Sender: FDA-Public Use
  Company Number: HU-MYLANLABS-2019M1071130

PATIENT
  Age: 6 Year
  Sex: Female

DRUGS (1)
  1. LAMOTRIGINE. [Suspect]
     Active Substance: LAMOTRIGINE
     Indication: EPILEPSY
     Dosage: UNK

REACTIONS (5)
  - Drug hypersensitivity [Unknown]
  - Haemolytic anaemia [Recovered/Resolved]
  - Haemolysis [Unknown]
  - Lymphadenopathy [Unknown]
  - Hepatomegaly [Unknown]
